FAERS Safety Report 8812065 (Version 2)
Quarter: 2012Q4

REPORT INFORMATION
  Report Type: 
  Country: US (occurrence: US)
  Receive Date: 20120927
  Receipt Date: 20121017
  Transmission Date: 20130627
  Serious: Yes (Other)
  Sender: FDA-Public Use
  Company Number: US-TEVA-360450USA

PATIENT
  Age: 41 Year
  Sex: Female
  Weight: 108.96 kg

DRUGS (3)
  1. COPAXONE [Suspect]
     Indication: MULTIPLE SCLEROSIS
     Dates: start: 201207
  2. BACLOFEN [Concomitant]
     Dosage: 20 Milligram Daily;
     Route: 048
  3. VITAMIN D2 [Concomitant]
     Dosage: 7142.8571 IU (International Unit) Daily;
     Route: 048

REACTIONS (12)
  - Immediate post-injection reaction [Recovered/Resolved]
  - Injection site reaction [Unknown]
  - Chest discomfort [Recovered/Resolved]
  - Oedema [Recovered/Resolved]
  - Face oedema [Recovered/Resolved]
  - Flushing [Recovered/Resolved]
  - Hypoaesthesia oral [Recovered/Resolved]
  - Feeling hot [Recovered/Resolved]
  - Nausea [Recovered/Resolved]
  - Erythema [Recovered/Resolved]
  - Throat tightness [Recovered/Resolved]
  - Dyspnoea [Recovered/Resolved]
